FAERS Safety Report 10103480 (Version 2)
Quarter: 2014Q2

REPORT INFORMATION
  Report Type: Spontaneous
  Country: US (occurrence: US)
  Receive Date: 20140424
  Receipt Date: 20140424
  Transmission Date: 20141212
  Serious: No
  Sender: FDA-Public Use
  Company Number: US-BRISTOL-MYERS SQUIBB COMPANY-20415170

PATIENT
  Age: 74 Year
  Sex: Female

DRUGS (9)
  1. ELIQUIS [Suspect]
     Indication: ATRIAL FIBRILLATION
     Route: 048
     Dates: start: 20140128, end: 20140204
  2. ATENOLOL [Concomitant]
  3. COQ10 [Concomitant]
  4. FISH OIL [Concomitant]
  5. FLAXSEED [Concomitant]
  6. PROTONIX [Concomitant]
  7. RAMIPRIL [Concomitant]
  8. TIKOSYN [Concomitant]
  9. VITAMIN D [Concomitant]

REACTIONS (1)
  - Gastrointestinal disorder [Unknown]
